FAERS Safety Report 5920117-X (Version None)
Quarter: 2008Q4

REPORT INFORMATION
  Report Type: 
  Country: None (occurrence: None)
  Receive Date: 20081015
  Receipt Date: 20081015
  Transmission Date: 20090506
  Serious: No
  Sender: FDA-Public Use
  Company Number: None

PATIENT
  Sex: Male
  Weight: 77.1115 kg

DRUGS (2)
  1. AMIFOSTINE [Suspect]
     Indication: DRY MOUTH
     Dosage: 500MG M-F SQ 18 DOSES
     Route: 058
     Dates: start: 20080916
  2. AMIFOSTINE [Suspect]
     Indication: HEAD AND NECK CANCER
     Dosage: 500MG M-F SQ 18 DOSES
     Route: 058
     Dates: start: 20080916

REACTIONS (2)
  - PRURITUS [None]
  - RASH MACULO-PAPULAR [None]
